FAERS Safety Report 21755293 (Version 1)
Quarter: 2022Q4

REPORT INFORMATION
  Report Type: Spontaneous
  Country: US (occurrence: None)
  Receive Date: 20221220
  Receipt Date: 20221220
  Transmission Date: 20230113
  Serious: No
  Sender: FDA-Public Use
  Company Number: US-SUPERNUS Pharmaceuticals, Inc.-SUP202201-000040

PATIENT
  Age: 59 Year
  Sex: Male
  Weight: 47.6 kg

DRUGS (4)
  1. OXTELLAR XR [Suspect]
     Active Substance: OXCARBAZEPINE
     Indication: Seizure
  2. OXTELLAR XR [Suspect]
     Active Substance: OXCARBAZEPINE
  3. DILANTIN [Concomitant]
     Active Substance: PHENYTOIN
     Dosage: NOT PROVIDED
  4. NEURONTIN [Concomitant]
     Active Substance: GABAPENTIN
     Dosage: NOT PROVIDED

REACTIONS (1)
  - Weight decreased [Unknown]
